FAERS Safety Report 15925648 (Version 2)
Quarter: 2019Q1

REPORT INFORMATION
  Report Type: Report from Study
  Country: CO (occurrence: CO)
  Receive Date: 20190206
  Receipt Date: 20190320
  Transmission Date: 20190417
  Serious: Yes (Hospitalization, Other)
  Sender: FDA-Public Use
  Company Number: CO-SA-2019SA018415

PATIENT
  Age: 53 Year
  Sex: Male

DRUGS (4)
  1. ENZALUTAMIDE [Suspect]
     Active Substance: ENZALUTAMIDE
     Dosage: 160 MG, QD
  2. DENOSUMAB [Suspect]
     Active Substance: DENOSUMAB
     Dosage: 120 MG, QM
  3. CABAZITAXEL [Suspect]
     Active Substance: CABAZITAXEL
     Indication: PROSTATE CANCER METASTATIC
     Dosage: UNK UNK, QCY(EVERY 21 DAYS)
     Route: 042
     Dates: start: 20180323
  4. HYDROMORPHONE [Concomitant]
     Active Substance: HYDROMORPHONE
     Indication: PAIN
     Dosage: 1 DF, Q4H (1 AMPOULE)
     Route: 065

REACTIONS (7)
  - Prostatic specific antigen increased [Unknown]
  - Mass [Unknown]
  - Osteitis [Not Recovered/Not Resolved]
  - Radiotherapy [Not Recovered/Not Resolved]
  - Musculoskeletal chest pain [Not Recovered/Not Resolved]
  - Paraesthesia [Not Recovered/Not Resolved]
  - Diarrhoea [Not Recovered/Not Resolved]

NARRATIVE: CASE EVENT DATE: 201811
